FAERS Safety Report 13168697 (Version 3)
Quarter: 2017Q1

REPORT INFORMATION
  Report Type: Spontaneous
  Country: US (occurrence: US)
  Receive Date: 20170131
  Receipt Date: 20170303
  Transmission Date: 20170428
  Serious: No
  Sender: FDA-Public Use
  Company Number: US-GLAXOSMITHKLINE-US2017012187

PATIENT
  Sex: Female
  Weight: 149.21 kg

DRUGS (4)
  1. METFORMIN [Concomitant]
     Active Substance: METFORMIN HYDROCHLORIDE
  2. TANZEUM [Suspect]
     Active Substance: ALBIGLUTIDE
     Indication: TYPE 2 DIABETES MELLITUS
     Dosage: 50 MG, WE
     Route: 042
     Dates: start: 201605
  3. TANZEUM [Suspect]
     Active Substance: ALBIGLUTIDE
     Indication: WEIGHT DECREASED
  4. GLYBURIDE. [Concomitant]
     Active Substance: GLYBURIDE

REACTIONS (8)
  - Device use error [Unknown]
  - Drug ineffective [Recovered/Resolved]
  - Product use issue [Unknown]
  - Medication error [Unknown]
  - Underdose [Unknown]
  - Blood glucose increased [Unknown]
  - Product quality issue [Unknown]
  - Device leakage [Unknown]
